FAERS Safety Report 9050488 (Version 1)
Quarter: 2013Q1

REPORT INFORMATION
  Report Type: Spontaneous
  Country: CA (occurrence: CA)
  Receive Date: 20130205
  Receipt Date: 20130205
  Transmission Date: 20140127
  Serious: No
  Sender: FDA-Public Use
  Company Number: CA-B.I. PHARMACEUTICALS,INC./RIDGEFIELD-2012-BI-01394BP

PATIENT
  Sex: Male
  Weight: 113.4 kg

DRUGS (2)
  1. MIRAPEX [Suspect]
     Indication: PARKINSON^S DISEASE
     Dates: start: 20050418
  2. MIRAPEX [Suspect]
     Dosage: 4 MG
     Dates: start: 200710, end: 200802

REACTIONS (3)
  - Pathological gambling [Recovered/Resolved]
  - Feeling abnormal [Unknown]
  - Movement disorder [Unknown]
